FAERS Safety Report 19487417 (Version 1)
Quarter: 2021Q3

REPORT INFORMATION
  Report Type: Spontaneous
  Country: AT (occurrence: AT)
  Receive Date: 20210702
  Receipt Date: 20210702
  Transmission Date: 20211014
  Serious: Yes (Other)
  Sender: FDA-Public Use
  Company Number: AT-ELI_LILLY_AND_COMPANY-AT202106013413

PATIENT
  Age: 39 Year
  Sex: Male
  Weight: 95 kg

DRUGS (10)
  1. TEMESTA [ASTEMIZOLE] [Concomitant]
     Active Substance: ASTEMIZOLE
     Dates: start: 20210504, end: 20210514
  2. VENLAFAB [Suspect]
     Active Substance: VENLAFAXINE HYDROCHLORIDE
     Indication: PRODUCT USED FOR UNKNOWN INDICATION
     Dosage: 37.5 MG, UNKNOWN
     Route: 065
     Dates: start: 20210511, end: 20210518
  3. TEMESTA [ASTEMIZOLE] [Concomitant]
     Active Substance: ASTEMIZOLE
     Dates: start: 20210515, end: 20210521
  4. DOMINAL (PROTHIPENDYL HYDROCHLORIDE) [Suspect]
     Active Substance: PROTHIPENDYL HYDROCHLORIDE
     Indication: PRODUCT USED FOR UNKNOWN INDICATION
     Dosage: 120 MG/ M3
     Route: 065
     Dates: start: 20210429, end: 20210528
  5. QUILONORM [LITHIUM ACETATE] [Concomitant]
     Active Substance: LITHIUM ACETATE
     Indication: PRODUCT USED FOR UNKNOWN INDICATION
     Dosage: 450 MG, UNKNOWN
     Dates: start: 20210510, end: 20210514
  6. QUILONORM [LITHIUM ACETATE] [Concomitant]
     Active Substance: LITHIUM ACETATE
     Dosage: 675 MG, UNKNOWN
     Dates: start: 20210515, end: 20210528
  7. CONCOR [Concomitant]
     Active Substance: BISOPROLOL FUMARATE
     Indication: PRODUCT USED FOR UNKNOWN INDICATION
     Dates: start: 20210506, end: 20210528
  8. ZYPREXA [Suspect]
     Active Substance: OLANZAPINE
     Indication: PRODUCT USED FOR UNKNOWN INDICATION
     Dosage: 10 MG, UNKNOWN
     Route: 065
     Dates: start: 20210510, end: 20210517
  9. ZYPREXA [Suspect]
     Active Substance: OLANZAPINE
     Dosage: 5 MG, UNKNOWN
     Route: 065
     Dates: start: 20210518, end: 20210519
  10. TEMESTA [ASTEMIZOLE] [Concomitant]
     Active Substance: ASTEMIZOLE
     Indication: PRODUCT USED FOR UNKNOWN INDICATION
     Dates: start: 20210427, end: 20210503

REACTIONS (2)
  - Deep vein thrombosis [Recovering/Resolving]
  - Pulmonary embolism [Recovering/Resolving]

NARRATIVE: CASE EVENT DATE: 20210515
